FAERS Safety Report 15887112 (Version 14)
Quarter: 2025Q1

REPORT INFORMATION
  Report Type: Spontaneous
  Country: US (occurrence: US)
  Receive Date: 20190130
  Receipt Date: 20250217
  Transmission Date: 20250408
  Serious: Yes (Disabling, Other)
  Sender: PFIZER
  Company Number: US-PFIZER INC-2019041966

PATIENT
  Age: 67 Year
  Sex: Female

DRUGS (1)
  1. XELJANZ XR [Suspect]
     Active Substance: TOFACITINIB CITRATE
     Dosage: 11 MG, DAILY
     Route: 048

REACTIONS (9)
  - Rheumatoid arthritis [Unknown]
  - Rotator cuff syndrome [Unknown]
  - Nerve injury [Unknown]
  - Malaise [Unknown]
  - Arthritis [Unknown]
  - Sensitivity to weather change [Unknown]
  - Pain [Unknown]
  - Groin pain [Unknown]
  - Fatigue [Unknown]
